FAERS Safety Report 7264611-0 (Version None)
Quarter: 2011Q1

REPORT INFORMATION
  Report Type: 
  Country: None (occurrence: None)
  Receive Date: 20110131
  Receipt Date: 20110124
  Transmission Date: 20110831
  Serious: No
  Sender: FDA-Public Use
  Company Number: US-PFIZER INC-2011016948

PATIENT
  Sex: Female
  Weight: 81.633 kg

DRUGS (9)
  1. LYRICA [Suspect]
     Indication: FIBROMYALGIA
     Dosage: 150 MG, 2X/DAY
     Route: 048
     Dates: start: 20110106
  2. POTASSIUM [Concomitant]
     Dosage: UNK
  3. KLOR-CON [Concomitant]
     Dosage: 20 MG, DAILY
  4. FLONASE [Concomitant]
     Dosage: UNK
  5. NEXIUM [Concomitant]
     Dosage: 40 MG, UNK
  6. AMITRIPTYLINE [Concomitant]
     Dosage: 50 MG, UNK
  7. HYDROCHLOROTHIAZIDE [Concomitant]
     Dosage: 25 MG, DAILY
  8. ADVAIR [Concomitant]
     Dosage: UNK
  9. SPIRIVA [Concomitant]
     Dosage: UNK

REACTIONS (1)
  - PAIN [None]
